FAERS Safety Report 9845622 (Version 1)
Quarter: 2014Q1

REPORT INFORMATION
  Report Type: Spontaneous
  Country: US (occurrence: None)
  Receive Date: 20140122
  Receipt Date: 20140122
  Transmission Date: 20141002
  Serious: Yes (Death)
  Sender: FDA-Public Use
  Company Number: POI0573201400013

PATIENT
  Age: 47 Year
  Sex: Female

DRUGS (9)
  1. VENLAFAXINE EXTENDED-RELEASE TABLETS [Suspect]
     Dates: end: 2012
  2. METHAMPHETAMINE [Suspect]
     Dates: end: 2012
  3. ACETAMINOPHEN/HYDROCODONE [Suspect]
     Dates: end: 2012
  4. ALPRAZOLAM [Suspect]
     Dates: end: 2012
  5. CITALOPRAM [Suspect]
     Dates: end: 2012
  6. BUPROPION [Suspect]
     Dates: end: 2012
  7. CARBAMAZEPINE [Suspect]
     Dates: end: 2012
  8. DOXYLAMINE [Suspect]
     Dates: end: 2012
  9. TRAMADOL [Suspect]
     Dates: end: 2012

REACTIONS (1)
  - Exposure via ingestion [None]
